FAERS Safety Report 5110463-4 (Version None)
Quarter: 2006Q3

REPORT INFORMATION
  Report Type: 
  Country: None (occurrence: None)
  Receive Date: 20060915
  Receipt Date: 20060811
  Transmission Date: 20061208
  Serious: Yes (Death, Hospitalization)
  Sender: FDA-Public Use
  Company Number: 2006-144155-NL

PATIENT
  Age: 78 Year
  Sex: Female

DRUGS (13)
  1. DANAPAROID SODIUM [Suspect]
     Indication: DISSEMINATED INTRAVASCULAR COAGULATION
     Dosage: INTRAVENOUS (NOS)
     Route: 042
     Dates: start: 20060410, end: 20060519
  2. MEROPENEM TRIHYDRATE [Concomitant]
  3. FAMOTIDINE [Concomitant]
  4. CLINDAMYCIN PHOSPHATE [Concomitant]
  5. PAZUFLOXACIN [Concomitant]
  6. HYDROCORTISONE SODIUM SUCCINATE [Concomitant]
  7. MICAFUNGIN SODIUM [Concomitant]
  8. GABEXATE MESILATE [Concomitant]
  9. CARPERITIDE [Concomitant]
  10. SIVELESTAT [Concomitant]
  11. NAFAMOSTAT MESILATE [Concomitant]
  12. MIDAZOLAM HCL [Concomitant]
  13. BUTORPHANOL TARTRATE [Concomitant]

REACTIONS (4)
  - CONDITION AGGRAVATED [None]
  - GASTROINTESTINAL HAEMORRHAGE [None]
  - MULTI-ORGAN FAILURE [None]
  - SEPSIS [None]
